FAERS Safety Report 9904229 (Version 1)
Quarter: 2014Q1

REPORT INFORMATION
  Report Type: Spontaneous
  Country: US (occurrence: US)
  Receive Date: 20140218
  Receipt Date: 20140218
  Transmission Date: 20141002
  Serious: No
  Sender: FDA-Public Use
  Company Number: US-009507513-1402USA007673

PATIENT
  Age: 31 Year
  Sex: Female

DRUGS (2)
  1. LISINOPRIL [Suspect]
     Route: 048
  2. LOSARTAN POTASSIUM [Suspect]
     Indication: HYPERTENSION
     Route: 048

REACTIONS (1)
  - Small bowel angioedema [Recovered/Resolved]
